FAERS Safety Report 4811037-2 (Version None)
Quarter: 2005Q4

REPORT INFORMATION
  Report Type: 
  Country: None (occurrence: None)
  Receive Date: 20051027
  Receipt Date: 20051024
  Transmission Date: 20060501
  Serious: Yes (Hospitalization)
  Sender: FDA-Public Use
  Company Number: ES-JNJFOC-20051002925

PATIENT
  Age: 60 Year
  Sex: Male

DRUGS (2)
  1. REMICADE [Suspect]
     Route: 042
  2. REMICADE [Suspect]
     Indication: RHEUMATOID ARTHRITIS
     Route: 042

REACTIONS (7)
  - ABDOMINAL DISTENSION [None]
  - ANAL FISTULA [None]
  - CHILLS [None]
  - COLONIC STENOSIS [None]
  - NIGHT SWEATS [None]
  - PYREXIA [None]
  - TUBERCULOSIS GASTROINTESTINAL [None]
